FAERS Safety Report 10658092 (Version 3)
Quarter: 2016Q1

REPORT INFORMATION
  Report Type: Spontaneous
  Country: TR (occurrence: TR)
  Receive Date: 20141217
  Receipt Date: 20160112
  Transmission Date: 20160525
  Serious: Yes (Hospitalization)
  Sender: FDA-Public Use
  Company Number: TR-JNJFOC-20141108340

PATIENT
  Age: 68 Year
  Sex: Female
  Weight: 75 kg

DRUGS (2)
  1. SIMPONI [Suspect]
     Active Substance: GOLIMUMAB
     Indication: PSORIATIC ARTHROPATHY
     Route: 058
     Dates: start: 20130523
  2. ARAVA [Concomitant]
     Active Substance: LEFLUNOMIDE
     Dosage: STARTED 3 YEARS AGO. AND STOPPED AFTER GALL BLADDER SURGERY.
     Route: 065
     Dates: start: 2011, end: 201412

REACTIONS (2)
  - Cholecystitis [Recovered/Resolved]
  - Localised infection [Recovered/Resolved]

NARRATIVE: CASE EVENT DATE: 20141109
